FAERS Safety Report 8204636-1 (Version None)
Quarter: 2012Q1

REPORT INFORMATION
  Report Type: 
  Country: None (occurrence: None)
  Receive Date: 20120313
  Receipt Date: 20120307
  Transmission Date: 20120608
  Serious: Yes (Death, Hospitalization)
  Sender: FDA-Public Use
  Company Number: JP-ELI_LILLY_AND_COMPANY-JP201202002072

PATIENT
  Sex: Male
  Weight: 57 kg

DRUGS (10)
  1. HANGEKOBOKUTO [Concomitant]
     Dosage: 7.5 G, UNK
     Route: 048
  2. MUCOSTA [Concomitant]
     Dosage: 300 MG, UNK
     Route: 048
     Dates: start: 20110831
  3. FAMOTIDINE [Concomitant]
     Dosage: 40 MG, UNK
     Route: 048
  4. LYRICA [Concomitant]
     Dosage: 300 MG, UNK
     Route: 048
  5. MUCODYNE [Concomitant]
     Dosage: 1500 MG, UNK
     Route: 048
  6. TENORMIN [Concomitant]
     Dosage: 75 MG, UNK
     Route: 048
  7. LOXONIN [Concomitant]
     Dosage: 180 MG, UNK
     Route: 048
     Dates: start: 20110831
  8. ALIMTA [Suspect]
     Indication: NON-SMALL CELL LUNG CANCER STAGE IV
     Dosage: 800 MG, UNK
     Route: 042
     Dates: start: 20110924, end: 20111014
  9. METHYCOBAL [Concomitant]
     Dosage: 1500 UG, UNK
     Route: 048
  10. PANVITAN [Concomitant]
     Dosage: 1 G, UNK
     Route: 048
     Dates: start: 20110913

REACTIONS (7)
  - HYDRONEPHROSIS [None]
  - ALOPECIA [None]
  - RENAL FAILURE [None]
  - POLYARTHRITIS [None]
  - INTERSTITIAL LUNG DISEASE [None]
  - DIVERTICULITIS [None]
  - NEUTROPHIL COUNT DECREASED [None]
